FAERS Safety Report 5757203-3 (Version None)
Quarter: 2008Q2

REPORT INFORMATION
  Report Type: 
  Country: None (occurrence: None)
  Receive Date: 20080529
  Receipt Date: 20080514
  Transmission Date: 20081010
  Serious: Yes (Hospitalization)
  Sender: FDA-Public Use
  Company Number: 028239

PATIENT
  Sex: Female

DRUGS (4)
  1. CITALOPRAM(CITALOPRAM HYDROBROMIDE) TABLET, 40MG [Suspect]
     Indication: DRUG EXPOSURE DURING PREGNANCY
     Dosage: 40 MG, TRANSPLACENTAL
     Route: 064
  2. ONDANSETRON HCL [Suspect]
     Indication: DRUG EXPOSURE DURING PREGNANCY
     Dosage: 4 MG, BID, TRANSPLACENTAL
     Route: 064
  3. ZANTAC [Suspect]
     Indication: DRUG EXPOSURE DURING PREGNANCY
     Dosage: 150 MG, TRANSPLACENTAL
     Route: 064
  4. URSODIOL [Suspect]
     Indication: DRUG EXPOSURE DURING PREGNANCY
     Dosage: 900 MG, TRANSPLACENTAL
     Route: 064

REACTIONS (11)
  - DRUG INTERACTION [None]
  - DRUG WITHDRAWAL SYNDROME NEONATAL [None]
  - ELECTROENCEPHALOGRAM ABNORMAL [None]
  - EXTRAPYRAMIDAL DISORDER [None]
  - MATERNAL DRUGS AFFECTING FOETUS [None]
  - METABOLIC ACIDOSIS [None]
  - NEONATAL DISORDER [None]
  - NEONATAL RESPIRATORY DISTRESS SYNDROME [None]
  - PREMATURE BABY [None]
  - RESPIRATORY DISORDER NEONATAL [None]
  - SMALL FOR DATES BABY [None]
